FAERS Safety Report 5319596-0 (Version None)
Quarter: 2007Q2

REPORT INFORMATION
  Report Type: 
  Country: None (occurrence: None)
  Receive Date: 20070503
  Receipt Date: 20070420
  Transmission Date: 20071010
  Serious: Yes (Congenital Anomaly)
  Sender: FDA-Public Use
  Company Number: S07-FIN-01390-02

PATIENT
  Sex: Male
  Weight: 3.085 kg

DRUGS (8)
  1. ESCITALOPRAM [Suspect]
     Indication: DEPRESSION
     Dosage: 10 MG QD TRANSPLACENTAL
     Route: 064
  2. XENICAL [Concomitant]
  3. SELEXID (PIVMECILLINAM HYDROCHLORIDE) [Concomitant]
  4. SUCRALFATE [Concomitant]
  5. AGIOCUR (ISPAGHULA) [Concomitant]
  6. LAXOBERON (SODIUM PICOSULFATE) [Concomitant]
  7. LANSOPRAZOLE [Concomitant]
  8. TOLTERODINE TARTRATE [Concomitant]

REACTIONS (5)
  - BREECH PRESENTATION [None]
  - CAESAREAN SECTION [None]
  - CONGENITAL HAND MALFORMATION [None]
  - DRUG EXPOSURE DURING PREGNANCY [None]
  - DYSMORPHISM [None]
